FAERS Safety Report 9230713 (Version 1)
Quarter: 2013Q1

REPORT INFORMATION
  Report Type: Spontaneous
  Country: US (occurrence: None)
  Receive Date: 20121031
  Receipt Date: 20121031
  Transmission Date: 20140127
  Serious: No
  Sender: FDA-Public Use
  Company Number: PHEH2012US016097

PATIENT
  Age: 39 Year
  Sex: Female

DRUGS (6)
  1. GILENYA (FTY) CAPSULE [Suspect]
     Indication: MULTIPLE SCLEROSIS
     Route: 048
     Dates: start: 20110329
  2. PROZAC (FLUOXETINE HYDROCHLORIDE) CAPSULE [Concomitant]
  3. CALTRATE + D (CALCIUM CARBONATE, COLECALCIFEROL) CHEWABLE TABLET [Concomitant]
  4. NEURONTIN (GABAPENTIN) [Concomitant]
  5. NEXIUM (ESOMEPRAZOLE MAGNESIUM) CAPSULE [Concomitant]
  6. ATIVAN (LORAZEPAM) TABLET [Concomitant]

REACTIONS (1)
  - Vitamin D deficiency [None]
